FAERS Safety Report 5275200-1 (Version None)
Quarter: 2007Q1

REPORT INFORMATION
  Report Type: 
  Country: None (occurrence: None)
  Receive Date: 20061214
  Receipt Date: 20060612
  Transmission Date: 20070707
  Serious: Yes (Hospitalization, Other)
  Sender: FDA-Public Use
  Company Number: 2006074950

PATIENT
  Age: 51 Year
  Sex: Female
  Weight: 63.5036 kg

DRUGS (2)
  1. BEXTRA [Suspect]
     Indication: ARTHRITIS
     Dosage: 20 MG (20 MG, 1 IN 1 D)
     Dates: start: 20030405
  2. BEXTRA [Suspect]
     Indication: MUSCULOSKELETAL PAIN
     Dosage: 20 MG (20 MG, 1 IN 1 D)
     Dates: start: 20030405

REACTIONS (4)
  - ARTERIOSCLEROSIS [None]
  - CONDITION AGGRAVATED [None]
  - DEPRESSION [None]
  - MYOCARDIAL INFARCTION [None]
